FAERS Safety Report 6307932-8 (Version None)
Quarter: 2009Q3

REPORT INFORMATION
  Report Type: 
  Country: None (occurrence: None)
  Receive Date: 20090813
  Receipt Date: 20090804
  Transmission Date: 20100115
  Serious: Yes (Other)
  Sender: FDA-Public Use
  Company Number: US-ELI_LILLY_AND_COMPANY-US200908000969

PATIENT

DRUGS (1)
  1. BYETTA [Suspect]
     Dosage: UNK, 2/D
     Route: 058

REACTIONS (1)
  - THROMBOSIS [None]
